FAERS Safety Report 6257032-0 (Version None)
Quarter: 2009Q3

REPORT INFORMATION
  Report Type: 
  Country: None (occurrence: None)
  Receive Date: 20090706
  Receipt Date: 20090626
  Transmission Date: 20100115
  Serious: Yes (Hospitalization)
  Sender: FDA-Public Use
  Company Number: A0793982A

PATIENT
  Age: 0 Year
  Sex: Male

DRUGS (5)
  1. PROMACTA [Suspect]
     Indication: IDIOPATHIC THROMBOCYTOPENIC PURPURA
     Dosage: 25MG PER DAY
  2. COLACE [Concomitant]
  3. VITAMIN TAB [Concomitant]
  4. PHENERGAN [Concomitant]
  5. OXYCODONE [Concomitant]

REACTIONS (5)
  - DRUG EXPOSURE DURING PREGNANCY [None]
  - IDIOPATHIC THROMBOCYTOPENIC PURPURA [None]
  - JAUNDICE [None]
  - PREMATURE BABY [None]
  - RESPIRATORY DISTRESS [None]
